FAERS Safety Report 4570559-2 (Version None)
Quarter: 2005Q1

REPORT INFORMATION
  Report Type: 
  Country: None (occurrence: None)
  Receive Date: 20050202
  Receipt Date: 20050202
  Transmission Date: 20050727
  Serious: Yes (Hospitalization)
  Sender: FDA-Public Use
  Company Number: None

PATIENT
  Sex: Female

DRUGS (4)
  1. GEMCITABINE [Suspect]
     Indication: PANCREATIC CARCINOMA METASTATIC
     Dosage: 600  MG/M2   INTRAVENOU
     Route: 042
     Dates: start: 20040511, end: 20050125
  2. IRINOTECAN [Suspect]
     Indication: PANCREATIC CARCINOMA METASTATIC
     Dosage: 50   MG/M2   INTRAVENOU
     Route: 042
     Dates: start: 20040511, end: 20050125
  3. ZOFRAN [Concomitant]
  4. DECADRON [Concomitant]

REACTIONS (4)
  - ABDOMINAL PAIN [None]
  - CLOSTRIDIAL INFECTION [None]
  - DEHYDRATION [None]
  - DIARRHOEA [None]
